FAERS Safety Report 18007076 (Version 4)
Quarter: 2020Q3

REPORT INFORMATION
  Report Type: Other
  Country: CA (occurrence: CA)
  Receive Date: 20200710
  Receipt Date: 20200920
  Transmission Date: 20201103
  Serious: Yes (Other)
  Sender: FDA-Public Use
  Company Number: CA-ROCHE-2639650

PATIENT
  Sex: Female

DRUGS (3)
  1. XOLAIR [Suspect]
     Active Substance: OMALIZUMAB
     Indication: CHRONIC SPONTANEOUS URTICARIA
     Dosage: 300 MG, EVERY 4 WEEKS
     Route: 058
     Dates: start: 20200430
  2. XOLAIR [Suspect]
     Active Substance: OMALIZUMAB
     Dosage: 300 MG, EVERY 4 WEEKS
     Route: 058
  3. XOLAIR [Suspect]
     Active Substance: OMALIZUMAB
     Route: 058

REACTIONS (14)
  - Sensation of foreign body [Unknown]
  - Hypoaesthesia [Not Recovered/Not Resolved]
  - Stress [Unknown]
  - Influenza like illness [Recovering/Resolving]
  - Pruritus [Not Recovered/Not Resolved]
  - Pyrexia [Unknown]
  - Alopecia [Not Recovered/Not Resolved]
  - Product dose omission issue [Unknown]
  - Haemorrhage [Unknown]
  - Spinal disorder [Unknown]
  - Erythema [Unknown]
  - Malaise [Unknown]
  - Burning sensation [Unknown]
  - Anaphylactic reaction [Unknown]
